FAERS Safety Report 17048180 (Version 2)
Quarter: 2019Q4

REPORT INFORMATION
  Report Type: Spontaneous
  Country: US (occurrence: US)
  Receive Date: 20191119
  Receipt Date: 20191230
  Transmission Date: 20200122
  Serious: No
  Sender: FDA-Public Use
  Company Number: US-PFIZER INC-2019494904

PATIENT
  Age: 88 Year
  Sex: Female
  Weight: 56.24 kg

DRUGS (2)
  1. IBRANCE [Suspect]
     Active Substance: PALBOCICLIB
     Indication: BREAST CANCER METASTATIC
     Dosage: 100 MG, CYCLIC (D 1-21 Q 28 DAYS)
     Route: 048
     Dates: start: 20191105
  2. IBRANCE [Suspect]
     Active Substance: PALBOCICLIB
     Indication: BREAST CANCER

REACTIONS (3)
  - Fatigue [Unknown]
  - Vomiting [Unknown]
  - Product dose omission [Unknown]
